FAERS Safety Report 6110376-5 (Version None)
Quarter: 2009Q1

REPORT INFORMATION
  Report Type: 
  Country: None (occurrence: None)
  Receive Date: 20090310
  Receipt Date: 20090305
  Transmission Date: 20090719
  Serious: Yes (Hospitalization, Other)
  Sender: FDA-Public Use
  Company Number: US-PFIZER INC-2009179454

PATIENT
  Sex: Male
  Weight: 79.819 kg

DRUGS (11)
  1. MEDROL [Suspect]
     Indication: PAIN
     Dosage: 24 MG, 1X/DAY
     Dates: start: 20090206, end: 20090211
  2. LEVOTHYROXINE [Interacting]
     Indication: HYPERTHYROIDISM
     Dosage: UNK
  3. ASTELIN [Concomitant]
     Dosage: UNK
  4. AVODART [Concomitant]
     Dosage: UNK
  5. TAMSULOSIN [Concomitant]
     Dosage: UNK
  6. ACIPHEX [Concomitant]
     Dosage: UNK
  7. MELOXICAM [Concomitant]
     Dosage: UNK
  8. CRESTOR [Concomitant]
     Dosage: UNK
  9. MULTI-VITAMINS [Concomitant]
     Dosage: UNK
  10. CALCIUM [Concomitant]
  11. SIMPLY SLEEP [Concomitant]
     Dosage: UNK

REACTIONS (3)
  - DRUG INTERACTION [None]
  - PANCREATITIS [None]
  - WEIGHT DECREASED [None]
